FAERS Safety Report 8082081-X (Version None)
Quarter: 2012Q1

REPORT INFORMATION
  Report Type: 
  Country: None (occurrence: None)
  Receive Date: 20120127
  Receipt Date: 20110228
  Transmission Date: 20120608
  Serious: No
  Sender: FDA-Public Use
  Company Number: US-ABBOTT-11P-163-0708037-00

PATIENT
  Age: 12 Year
  Sex: Male

DRUGS (3)
  1. MAXALT [Concomitant]
     Indication: MIGRAINE
  2. PENTASA [Concomitant]
     Indication: CROHN'S DISEASE
  3. HUMIRA [Suspect]
     Indication: CROHN'S DISEASE
     Dates: start: 20100626

REACTIONS (2)
  - PYREXIA [None]
  - OROPHARYNGEAL PAIN [None]
